FAERS Safety Report 24793311 (Version 1)
Quarter: 2024Q4

REPORT INFORMATION
  Report Type: Spontaneous
  Country: NL (occurrence: NL)
  Receive Date: 20241231
  Receipt Date: 20241231
  Transmission Date: 20250114
  Serious: Yes (Other)
  Sender: ACCORD
  Company Number: None

PATIENT
  Age: 57 Year
  Sex: Female
  Weight: 59 kg

DRUGS (2)
  1. CLOPIDOGREL [Suspect]
     Active Substance: CLOPIDOGREL BISULFATE
     Indication: Prophylaxis
     Dosage: 1 X PER DAY 1 TABLET
     Dates: start: 20220913, end: 20240713
  2. TEMAZEPAM [Concomitant]
     Active Substance: TEMAZEPAM

REACTIONS (6)
  - Bullous haemorrhagic dermatosis [Recovered/Resolved]
  - Restlessness [Recovered/Resolved]
  - Memory impairment [Recovered/Resolved]
  - Asthenia [Recovered/Resolved]
  - Dyspnoea [Recovered/Resolved]
  - Fatigue [Recovered/Resolved]
